FAERS Safety Report 23660781 (Version 1)
Quarter: 2024Q1

REPORT INFORMATION
  Report Type: Other
  Country: ZA (occurrence: None)
  Receive Date: 20240322
  Receipt Date: 20240322
  Transmission Date: 20240409
  Serious: No
  Sender: FDA-Public Use
  Company Number: ZA-ROCHE-3529096

PATIENT
  Sex: Male

DRUGS (1)
  1. OCREVUS [Suspect]
     Active Substance: OCRELIZUMAB
     Indication: Multiple sclerosis
     Dosage: THEREAFTER 600MG EVERY 6 MONTHS
     Route: 041
     Dates: start: 20230217

REACTIONS (4)
  - White matter lesion [Unknown]
  - Paranasal sinus inflammation [Unknown]
  - Demyelination [Unknown]
  - Paranasal sinus mucosal hypertrophy [Unknown]
